FAERS Safety Report 9164491 (Version 1)
Quarter: 2013Q1

REPORT INFORMATION
  Report Type: Spontaneous
  Country: PT (occurrence: None)
  Receive Date: 20130226
  Receipt Date: 20130226
  Transmission Date: 20140127
  Serious: Yes (Life-Threatening, Hospitalization)
  Sender: FDA-Public Use
  Company Number: ABR_00844_2013

PATIENT
  Age: 21 Year
  Sex: Female

DRUGS (6)
  1. ERYTHROMYCIN [Suspect]
     Indication: PRODUCT USED FOR UNKNOWN INDICATION
  2. AMOXICILLIN (AMOXICILLIN) [Suspect]
     Indication: OTITIS MEDIA ACUTE
  3. INDOMETACIN [Concomitant]
  4. MAGNESIUM [Suspect]
  5. STEROIDS (NOS) [Concomitant]
  6. ANTIHISTAMINES [Concomitant]

REACTIONS (4)
  - Rash pruritic [None]
  - Lip oedema [None]
  - Vomiting [None]
  - Dizziness [None]
